APPROVED DRUG PRODUCT: P.A.S. SODIUM
Active Ingredient: AMINOSALICYLATE SODIUM
Strength: 4GM/PACKET
Dosage Form/Route: POWDER;ORAL
Application: A080947 | Product #001
Applicant: CENTURY PHARMACEUTICALS INC
Approved: Approved Prior to Jan 1, 1982 | RLD: No | RS: No | Type: DISCN